FAERS Safety Report 20496663 (Version 1)
Quarter: 2022Q1

REPORT INFORMATION
  Report Type: Spontaneous
  Country: US (occurrence: US)
  Receive Date: 20220221
  Receipt Date: 20220221
  Transmission Date: 20220424
  Serious: Yes (Hospitalization, Other)
  Sender: FDA-Public Use
  Company Number: US-GLAXOSMITHKLINE-US2022AMR027374

PATIENT
  Age: 70 Year
  Sex: Male

DRUGS (16)
  1. SOTROVIMAB [Suspect]
     Active Substance: SOTROVIMAB
     Indication: Coronavirus infection
     Dosage: 500 MG, ONCE
     Route: 042
     Dates: start: 20220131
  2. TYLENOL [Concomitant]
     Active Substance: ACETAMINOPHEN
     Indication: Product used for unknown indication
     Dosage: 325 MG
  3. VENTOLIN HFA (ALBUTEROL) [Concomitant]
     Indication: Product used for unknown indication
     Dosage: UNK
  4. AUGMENTIN (AMOXYCILLIN + POTASSIUM CLAVULANATE) [Concomitant]
     Indication: Product used for unknown indication
     Dosage: 875-125 MG PER TABLET
  5. ASPIRIN [Concomitant]
     Active Substance: ASPIRIN
     Indication: Product used for unknown indication
     Dosage: 81 MG
  6. VITAMIN D3 [Concomitant]
     Active Substance: CHOLECALCIFEROL
     Indication: Product used for unknown indication
     Dosage: 2,000 UNIT
  7. COENZYME Q10 CAPSULES [Concomitant]
     Indication: Product used for unknown indication
     Dosage: 200 MG
  8. MOTRIN [Concomitant]
     Active Substance: IBUPROFEN
     Indication: Product used for unknown indication
     Dosage: 200 MG
  9. LANTUS SOLOSTAR [Concomitant]
     Active Substance: INSULIN GLARGINE
     Indication: Product used for unknown indication
     Dosage: 100 UNIT/ML (3 ML)
  10. LANTUS SOLOSTAR [Concomitant]
     Active Substance: INSULIN GLARGINE
     Dosage: INCREASED TO 25 UNITS AT BEDTIME
  11. HUMALOG KWIKPEN [Concomitant]
     Active Substance: INSULIN LISPRO
     Indication: Product used for unknown indication
     Dosage: 100 UNIT/ML
  12. HUMALOG KWIKPEN [Concomitant]
     Active Substance: INSULIN LISPRO
     Dosage: INCREASED TO ACCOMMODATE FOR THIS TO 15 UNITS AC
  13. NOVOLIN N NPH U-100 (INSULIN ISOPHANE) [Concomitant]
     Indication: Product used for unknown indication
     Dosage: 100 UNIT/ML INJECTION
  14. GLUCOPHAGE 1000 [Concomitant]
     Indication: Product used for unknown indication
     Dosage: 1000 MG
  15. PRILOSEC [Concomitant]
     Active Substance: OMEPRAZOLE MAGNESIUM
     Indication: Product used for unknown indication
     Dosage: 20 MG
  16. PRAVACHOL [Concomitant]
     Active Substance: PRAVASTATIN SODIUM
     Indication: Product used for unknown indication
     Dosage: 10 MG

REACTIONS (9)
  - Abdominal pain [Unknown]
  - Nausea [Unknown]
  - Vomiting [Unknown]
  - Diabetic ketoacidosis [Unknown]
  - Infrequent bowel movements [Unknown]
  - Illness [Unknown]
  - Dyspnoea [Unknown]
  - Fibrosis [Unknown]
  - Blood glucose increased [Unknown]

NARRATIVE: CASE EVENT DATE: 20220101
